FAERS Safety Report 19002710 (Version 4)
Quarter: 2021Q2

REPORT INFORMATION
  Report Type: Report from Study
  Country: US (occurrence: US)
  Receive Date: 20210312
  Receipt Date: 20210416
  Transmission Date: 20210717
  Serious: Yes (Death, Hospitalization, Other)
  Sender: FDA-Public Use
  Company Number: US-BAYER-2021-093474

PATIENT
  Age: 55 Year
  Sex: Female
  Weight: 48.8 kg

DRUGS (3)
  1. IPILIMUMAB [Suspect]
     Active Substance: IPILIMUMAB
     Indication: CLEAR CELL SARCOMA OF SOFT TISSUE
     Dosage: CYCLE 1?4 ONLY, 48.8MG
     Dates: end: 20210126
  2. NIVOLUMAB [Suspect]
     Active Substance: NIVOLUMAB
     Indication: CLEAR CELL SARCOMA OF SOFT TISSUE
     Dosage: 480MG
     Dates: end: 20210126
  3. COPANLISIB. [Suspect]
     Active Substance: COPANLISIB
     Indication: CLEAR CELL SARCOMA OF SOFT TISSUE
     Dosage: 60MG
     Dates: end: 20210126

REACTIONS (8)
  - Rash maculo-papular [None]
  - Pneumonitis [None]
  - Platelet count decreased [None]
  - Gastric ulcer [None]
  - Clear cell sarcoma of soft tissue [Fatal]
  - Myocarditis [Recovering/Resolving]
  - Pleural effusion [None]
  - Embolism [None]

NARRATIVE: CASE EVENT DATE: 20210202
